FAERS Safety Report 4664170-2 (Version None)
Quarter: 2005Q2

REPORT INFORMATION
  Report Type: 
  Country: None (occurrence: None)
  Receive Date: 20050516
  Receipt Date: 20050516
  Transmission Date: 20051028
  Serious: Yes (Hospitalization)
  Sender: FDA-Public Use
  Company Number: None

PATIENT
  Age: 25 Year
  Sex: Female
  Weight: 73.0291 kg

DRUGS (1)
  1. PAXIL [Suspect]
     Indication: POSTPARTUM DEPRESSION

REACTIONS (8)
  - ARTHRALGIA [None]
  - EMOTIONAL DISORDER [None]
  - HALLUCINATION [None]
  - HYPERTENSION [None]
  - MALAISE [None]
  - PAIN [None]
  - PALPITATIONS [None]
  - PYREXIA [None]
